FAERS Safety Report 13916103 (Version 1)
Quarter: 2017Q3

REPORT INFORMATION
  Report Type: Report from Study
  Country: None (occurrence: BR)
  Receive Date: 20170829
  Receipt Date: 20170829
  Transmission Date: 20171127
  Serious: Yes (Other)
  Sender: FDA-Public Use
  Company Number: BR-ABBVIE-17K-020-2083805-00

PATIENT
  Age: 29 Year
  Sex: Female
  Weight: 78 kg

DRUGS (2)
  1. HUMIRA [Suspect]
     Active Substance: ADALIMUMAB
     Route: 058
     Dates: start: 2017
  2. HUMIRA [Suspect]
     Active Substance: ADALIMUMAB
     Indication: ANKYLOSING SPONDYLITIS
     Route: 058
     Dates: start: 20160519, end: 201702

REACTIONS (5)
  - Exposure during pregnancy [Unknown]
  - Ankylosing spondylitis [Recovering/Resolving]
  - Foetal death [Unknown]
  - Red blood cell sedimentation rate abnormal [Unknown]
  - Abortion [Unknown]

NARRATIVE: CASE EVENT DATE: 201702
